FAERS Safety Report 8037129-5 (Version None)
Quarter: 2012Q1

REPORT INFORMATION
  Report Type: 
  Country: None (occurrence: None)
  Receive Date: 20120111
  Receipt Date: 20120105
  Transmission Date: 20120608
  Serious: Yes (Life-Threatening, Hospitalization, Disabling)
  Sender: FDA-Public Use
  Company Number: CA-PFIZER INC-2012007324

PATIENT
  Age: 66 Year
  Sex: Male
  Weight: 70 kg

DRUGS (5)
  1. PANTOPRAZOLE SODIUM [Suspect]
     Dosage: 1 DF, 1X/DAY
     Route: 048
  2. NEXIUM [Suspect]
     Dosage: 1 DF, 2X/DAY
     Route: 048
  3. BISOPROLOL [Concomitant]
  4. PERINDOPRIL ERBUMINE [Concomitant]
  5. ASPIRIN [Concomitant]
     Route: 048

REACTIONS (4)
  - HYPOCALCAEMIA [None]
  - HYPOKALAEMIA [None]
  - HYPOMAGNESAEMIA [None]
  - BLOOD CREATINE PHOSPHOKINASE INCREASED [None]
